FAERS Safety Report 5682876-3 (Version None)
Quarter: 2008Q1

REPORT INFORMATION
  Report Type: 
  Country: None (occurrence: None)
  Receive Date: 20080327
  Receipt Date: 20080326
  Transmission Date: 20080703
  Serious: Yes (Other)
  Sender: FDA-Public Use
  Company Number: A0717497A

PATIENT
  Age: 64 Year
  Sex: Female

DRUGS (8)
  1. ALLI [Suspect]
     Dates: start: 20070701
  2. MAXZIDE [Concomitant]
  3. FOSAMAX PLUS D [Concomitant]
  4. ASPIRIN [Concomitant]
  5. MELOXICAM [Concomitant]
  6. MULTI-VITAMIN [Concomitant]
  7. CALCIUM [Concomitant]
  8. TYLENOL (CAPLET) [Concomitant]
     Dosage: 2U AS REQUIRED

REACTIONS (5)
  - DEHYDRATION [None]
  - NEPHROLITHIASIS [None]
  - PAIN [None]
  - RECTAL DISCHARGE [None]
  - VOMITING [None]
